FAERS Safety Report 16957211 (Version 1)
Quarter: 2019Q4

REPORT INFORMATION
  Report Type: Spontaneous
  Country: GB (occurrence: GB)
  Receive Date: 20191024
  Receipt Date: 20191024
  Transmission Date: 20200122
  Serious: Yes (Other)
  Sender: FDA-Public Use
  Company Number: GB-AMGEN-GBRSP2019172963

PATIENT
  Age: 67 Year

DRUGS (1)
  1. ADALIMUMAB [Suspect]
     Active Substance: ADALIMUMAB
     Indication: RHEUMATOID ARTHRITIS
     Dosage: 40 MILLIGRAM, Q2WK
     Route: 058
     Dates: start: 20190228, end: 20190828

REACTIONS (4)
  - Condition aggravated [Unknown]
  - Muscle spasms [Unknown]
  - Rheumatoid arthritis [Unknown]
  - Dermatitis [Unknown]
